FAERS Safety Report 10642262 (Version 1)
Quarter: 2014Q4

REPORT INFORMATION
  Report Type: Spontaneous
  Country: US (occurrence: None)
  Receive Date: 20141208
  Receipt Date: 20141208
  Transmission Date: 20150529
  Serious: Yes (Life-Threatening, Hospitalization)
  Sender: FDA-Public Use
  Company Number: None

PATIENT
  Age: 72 Year
  Sex: Male
  Weight: 107 kg

DRUGS (3)
  1. RIVAROXABAN [Suspect]
     Active Substance: RIVAROXABAN
     Indication: ATRIAL FLUTTER
     Route: 048
     Dates: start: 20141108, end: 20141129
  2. METOPROLOL ER [Concomitant]
     Active Substance: METOPROLOL SUCCINATE
  3. XARELTO [Concomitant]
     Active Substance: RIVAROXABAN

REACTIONS (10)
  - Bloody discharge [None]
  - Urinary retention [None]
  - Anaemia [None]
  - Penile discharge [None]
  - Heart rate increased [None]
  - Pulmonary oedema [None]
  - Confusional state [None]
  - Discomfort [None]
  - Haemorrhage urinary tract [None]
  - Ureteric obstruction [None]

NARRATIVE: CASE EVENT DATE: 20141129
